FAERS Safety Report 13861823 (Version 1)
Quarter: 2017Q3

REPORT INFORMATION
  Report Type: Spontaneous
  Country: ES (occurrence: ES)
  Receive Date: 20170811
  Receipt Date: 20170811
  Transmission Date: 20171127
  Serious: Yes (Hospitalization)
  Sender: FDA-Public Use
  Company Number: ES-EMD SERONO-E2B_80077775

PATIENT
  Age: 45 Year
  Sex: Male
  Weight: 62 kg

DRUGS (4)
  1. REBIF [Suspect]
     Active Substance: INTERFERON BETA-1A
     Indication: MULTIPLE SCLEROSIS
     Route: 058
     Dates: start: 20121204, end: 20160122
  2. IRBESARTAN SANDOZ [Concomitant]
     Active Substance: IRBESARTAN
     Dosage: DOSE REDUCED
  3. ATORVASTATINA [Concomitant]
     Active Substance: ATORVASTATIN
     Indication: DYSLIPIDAEMIA
     Route: 048
  4. IRBESARTAN SANDOZ [Concomitant]
     Active Substance: IRBESARTAN
     Indication: HYPERTENSION
     Route: 048

REACTIONS (1)
  - Nephroangiosclerosis [Recovered/Resolved]

NARRATIVE: CASE EVENT DATE: 20160118
